FAERS Safety Report 18727182 (Version 3)
Quarter: 2021Q1

REPORT INFORMATION
  Report Type: Report from Study
  Country: None (occurrence: US)
  Receive Date: 20210112
  Receipt Date: 20210325
  Transmission Date: 20210419
  Serious: Yes (Other)
  Sender: FDA-Public Use
  Company Number: US-ABBVIE-21K-163-3721370-00

PATIENT
  Sex: Female

DRUGS (2)
  1. HUMIRA [Suspect]
     Active Substance: ADALIMUMAB
     Indication: CROHN^S DISEASE
     Route: 058
     Dates: end: 202008
  2. HUMIRA [Suspect]
     Active Substance: ADALIMUMAB
     Indication: CROHN^S DISEASE
     Route: 058
     Dates: start: 202012

REACTIONS (12)
  - Bipolar I disorder [Unknown]
  - Asthenia [Unknown]
  - Insomnia [Not Recovered/Not Resolved]
  - Appetite disorder [Not Recovered/Not Resolved]
  - Depression [Unknown]
  - Abdominal pain [Not Recovered/Not Resolved]
  - Incisional hernia [Unknown]
  - Quality of life decreased [Unknown]
  - Post procedural diarrhoea [Not Recovered/Not Resolved]
  - Stomal hernia [Recovered/Resolved]
  - Colostomy [Not Recovered/Not Resolved]
  - Drug ineffective [Unknown]

NARRATIVE: CASE EVENT DATE: 2020
